FAERS Safety Report 6908371-9 (Version None)
Quarter: 2010Q3

REPORT INFORMATION
  Report Type: 
  Country: None (occurrence: None)
  Receive Date: 20100803
  Receipt Date: 20100720
  Transmission Date: 20110219
  Serious: Yes (Hospitalization)
  Sender: FDA-Public Use
  Company Number: 7011010

PATIENT
  Age: 43 Year
  Sex: Female
  Weight: 106 kg

DRUGS (5)
  1. REBIF [Suspect]
     Indication: MULTIPLE SCLEROSIS
     Dosage: 44 MCG, 3 IN 1 WK, SUBCUTANEOUS
     Route: 058
     Dates: start: 20071015
  2. LEVOTHYROXINE SODIUM [Concomitant]
  3. ACTOS [Concomitant]
  4. BYETTA [Concomitant]
  5. TYLENOL (COTYLENOL) [Concomitant]

REACTIONS (7)
  - ABSCESS [None]
  - BILE DUCT STONE [None]
  - BLOOD GLUCOSE INCREASED [None]
  - HEART RATE INCREASED [None]
  - INJECTION SITE ERYTHEMA [None]
  - INJECTION SITE INFLAMMATION [None]
  - INJECTION SITE PAIN [None]
